FAERS Safety Report 10626141 (Version 1)
Quarter: 2014Q4

REPORT INFORMATION
  Report Type: Report from Study
  Country: BR (occurrence: BR)
  Receive Date: 20141204
  Receipt Date: 20141204
  Transmission Date: 20150529
  Serious: Yes (Death, Hospitalization)
  Sender: FDA-Public Use
  Company Number: PHHY2014BR155289

PATIENT
  Sex: Male
  Weight: 67 kg

DRUGS (7)
  1. CILOSTAZOL. [Concomitant]
     Active Substance: CILOSTAZOL
     Indication: PRODUCT USED FOR UNKNOWN INDICATION
     Route: 065
     Dates: start: 201402, end: 20141119
  2. NEOTIAPIM [Suspect]
     Active Substance: QUETIAPINE
     Indication: INSOMNIA
     Dosage: 12.5 MG, QD AT NIGHT
     Route: 048
     Dates: start: 201211
  3. SOMALGIN [Concomitant]
     Active Substance: ASPIRIN\DIHYDROXYALUMINUM AMINOACETATE ANHYDROUS\MAGNESIUM CARBONATE
     Indication: CARDIAC DISORDER
     Route: 065
     Dates: start: 201311, end: 20131120
  4. NEOTIAPIM [Suspect]
     Active Substance: QUETIAPINE
     Indication: SEDATIVE THERAPY
  5. CANCOR [Concomitant]
     Indication: CARDIAC DISORDER
     Route: 065
     Dates: start: 201205, end: 20141120
  6. AAS [Concomitant]
     Active Substance: ASPIRIN
     Indication: ANTIPLATELET THERAPY
     Route: 065
     Dates: start: 20120522, end: 20141120
  7. OMEPRAZOLE. [Concomitant]
     Active Substance: OMEPRAZOLE
     Indication: GASTRIC DISORDER
     Route: 065
     Dates: start: 201205, end: 201311

REACTIONS (4)
  - Coronary artery insufficiency [Fatal]
  - Chronic kidney disease [Fatal]
  - Coronary artery disease [Fatal]
  - Cardiac disorder [Unknown]
